FAERS Safety Report 6874476-4 (Version None)
Quarter: 2010Q3

REPORT INFORMATION
  Report Type: 
  Country: None (occurrence: None)
  Receive Date: 20100723
  Receipt Date: 20100723
  Transmission Date: 20110219
  Serious: Yes (Hospitalization)
  Sender: FDA-Public Use
  Company Number: None

PATIENT
  Age: 64 Year
  Sex: Female
  Weight: 73.0291 kg

DRUGS (4)
  1. PAXIL [Suspect]
     Indication: DEPRESSION
     Dosage: 20MG 1 PER DAY
     Dates: start: 20100313, end: 20100523
  2. CRT [Concomitant]
  3. PROZAC [Concomitant]
  4. SEROQUEL [Concomitant]

REACTIONS (3)
  - ECONOMIC PROBLEM [None]
  - OVERDOSE [None]
  - SUICIDAL IDEATION [None]
